FAERS Safety Report 12788679 (Version 1)
Quarter: 2016Q3

REPORT INFORMATION
  Report Type: Spontaneous
  Country: PL (occurrence: PL)
  Receive Date: 20160928
  Receipt Date: 20160928
  Transmission Date: 20161109
  Serious: Yes (Other)
  Sender: FDA-Public Use
  Company Number: PL-ROCHE-1835650

PATIENT
  Age: 67 Year
  Sex: Male
  Weight: 111 kg

DRUGS (7)
  1. BETALOC ZOK [Concomitant]
     Active Substance: METOPROLOL SUCCINATE
     Route: 048
  2. HEVIRAN [Concomitant]
     Active Substance: ACYCLOVIR
     Dosage: FREQUENCY REPORTED AS: ^2X400^
     Route: 048
  3. SPORANOX [Concomitant]
     Active Substance: ITRACONAZOLE
     Route: 048
  4. MILURIT [Concomitant]
     Active Substance: ALLOPURINOL
     Dosage: FREQUENCY REPORTED AS ^2X300^
     Route: 048
  5. GAZYVARO [Suspect]
     Active Substance: OBINUTUZUMAB
     Indication: CHRONIC LYMPHOCYTIC LEUKAEMIA
     Dosage: FREQUENCY REPORTED AS ^2^ WITH NO ADDITIONAL INFO
     Route: 042
     Dates: start: 20160515
  6. TRITACE [Concomitant]
     Active Substance: RAMIPRIL
     Route: 048
  7. AMLODIPINE [Concomitant]
     Active Substance: AMLODIPINE BESYLATE
     Route: 048

REACTIONS (5)
  - Agranulocytosis [Unknown]
  - Neutropenia [Recovered/Resolved]
  - Monocyte count decreased [Recovered/Resolved]
  - Lymphocyte count decreased [Recovered/Resolved]
  - White blood cell count decreased [Recovered/Resolved]

NARRATIVE: CASE EVENT DATE: 20160914
